FAERS Safety Report 4843747-5 (Version None)
Quarter: 2005Q4

REPORT INFORMATION
  Report Type: 
  Country: None (occurrence: None)
  Receive Date: 20051202
  Receipt Date: 20040216
  Transmission Date: 20060501
  Serious: Yes (Hospitalization, Disabling)
  Sender: FDA-Public Use
  Company Number: 2004SE00812

PATIENT
  Age: 72 Year
  Sex: Male
  Weight: 78 kg

DRUGS (10)
  1. MARCAIN SPINAL 0.5% HEAVY [Suspect]
     Indication: LOCAL ANAESTHESIA
     Route: 037
     Dates: start: 20031217, end: 20031217
  2. NAROPIN [Suspect]
     Indication: LOCAL ANAESTHESIA
     Route: 008
     Dates: start: 20031217, end: 20031217
  3. NAROPIN [Suspect]
     Dosage: 8-12 MG/HOUR
     Route: 008
     Dates: start: 20031217, end: 20031217
  4. STAGID [Concomitant]
     Indication: DIABETES MELLITUS NON-INSULIN-DEPENDENT
     Route: 048
  5. DIAMICRON [Concomitant]
     Indication: DIABETES MELLITUS NON-INSULIN-DEPENDENT
     Route: 048
  6. GLUCOBAY [Concomitant]
     Indication: DIABETES MELLITUS NON-INSULIN-DEPENDENT
     Route: 048
  7. ZARATOR [Concomitant]
     Indication: DYSLIPIDAEMIA
     Route: 048
  8. LIPANTHYL [Concomitant]
     Indication: DYSLIPIDAEMIA
     Route: 048
  9. OMNIC [Concomitant]
     Route: 048
  10. SUFENTANIL CITRATE [Concomitant]
     Indication: ANAESTHESIA
     Route: 037
     Dates: start: 20031217, end: 20031217

REACTIONS (7)
  - ANAESTHETIC COMPLICATION [None]
  - COORDINATION ABNORMAL [None]
  - IATROGENIC INJURY [None]
  - INTERVERTEBRAL DISC PROTRUSION [None]
  - MYELOPATHY [None]
  - PARAPARESIS [None]
  - URINARY INCONTINENCE [None]
